FAERS Safety Report 4496523-X (Version None)
Quarter: 2004Q4

REPORT INFORMATION
  Report Type: 
  Country: None (occurrence: None)
  Receive Date: 20041109
  Receipt Date: 20041022
  Transmission Date: 20050328
  Serious: Yes (Other)
  Sender: FDA-Public Use
  Company Number: GB-JNJFOC-20041007340

PATIENT
  Sex: Female

DRUGS (15)
  1. REMICADE [Suspect]
     Indication: RHEUMATOID ARTHRITIS
     Route: 042
  2. VIOXX [Concomitant]
  3. FLUOXETINE [Concomitant]
  4. PREDNISOLONE [Concomitant]
  5. METHOTREXATE [Concomitant]
  6. TRAMADOL [Concomitant]
  7. ELLESTE DUET [Concomitant]
  8. ELLESTE DUET [Concomitant]
  9. CO-AMILOZIDE [Concomitant]
  10. CO-AMILOZIDE [Concomitant]
  11. CALCIUM + ERGOCAL [Concomitant]
  12. CALCIUM + ERGOCAL [Concomitant]
  13. CALCIUM + ERGOCAL [Concomitant]
  14. FOLIC ACID [Concomitant]
  15. ATENOLOL [Concomitant]

REACTIONS (1)
  - MUSCLE RUPTURE [None]
